FAERS Safety Report 12220237 (Version 1)
Quarter: 2016Q1

REPORT INFORMATION
  Report Type: Spontaneous
  Country: US (occurrence: None)
  Receive Date: 20160329
  Receipt Date: 20160329
  Transmission Date: 20160526
  Serious: Yes (Death)
  Sender: FDA-Public Use
  Company Number: None

PATIENT
  Age: 55 Year
  Sex: Male

DRUGS (10)
  1. CITALOPRAM [Concomitant]
     Active Substance: CITALOPRAM HYDROBROMIDE
  2. ENOXAPARIN [Concomitant]
     Active Substance: ENOXAPARIN
  3. SUTENT [Suspect]
     Active Substance: SUNITINIB MALATE
     Indication: NEOPLASM MALIGNANT
     Route: 048
     Dates: start: 20160318, end: 20160320
  4. OMEPRAZOLE. [Concomitant]
     Active Substance: OMEPRAZOLE
  5. MIRALAX [Concomitant]
     Active Substance: POLYETHYLENE GLYCOL 3350
  6. TRAMADOL. [Concomitant]
     Active Substance: TRAMADOL
  7. FENTANYL. [Concomitant]
     Active Substance: FENTANYL
  8. FERROUS SULFATE [Concomitant]
     Active Substance: FERROUS SULFATE\FERROUS SULFATE, DRIED
  9. ONDANSETRON [Concomitant]
     Active Substance: ONDANSETRON
  10. EQUATE VANILLA [Concomitant]

REACTIONS (2)
  - Unevaluable event [None]
  - Platelet count decreased [None]

NARRATIVE: CASE EVENT DATE: 20160318
